FAERS Safety Report 22168997 (Version 1)
Quarter: 2023Q2

REPORT INFORMATION
  Report Type: Spontaneous
  Country: FR (occurrence: FR)
  Receive Date: 20230404
  Receipt Date: 20230404
  Transmission Date: 20230721
  Serious: Yes (Other)
  Sender: FDA-Public Use
  Company Number: FR-STRIDES ARCOLAB LIMITED-2023SP004609

PATIENT
  Age: 27 Year

DRUGS (5)
  1. LORATADINE [Suspect]
     Active Substance: LORATADINE
     Indication: Product used for unknown indication
     Dosage: UNK
     Route: 065
  2. ALPRAZOLAM [Suspect]
     Active Substance: ALPRAZOLAM
     Indication: Product used for unknown indication
     Dosage: UNK
     Route: 065
  3. SPIRAMYCIN [Suspect]
     Active Substance: SPIRAMYCIN
     Indication: Product used for unknown indication
     Dosage: UNK
     Route: 065
  4. CYPROTERONE ACETATE [Suspect]
     Active Substance: CYPROTERONE ACETATE
     Indication: Transgender hormonal therapy
     Dosage: 30 MILLIGRAM (PER DAY) (ONE ADMINISTRATION)
     Route: 065
  5. ESTRADIOL [Suspect]
     Active Substance: ESTRADIOL
     Indication: Transgender hormonal therapy
     Dosage: UNK
     Route: 065

REACTIONS (2)
  - Suicide attempt [Unknown]
  - Hepatitis [Recovered/Resolved]
